FAERS Safety Report 10488747 (Version 1)
Quarter: 2014Q3

REPORT INFORMATION
  Report Type: Spontaneous
  Country: US (occurrence: None)
  Receive Date: 20140930
  Receipt Date: 20140930
  Transmission Date: 20150326
  Serious: Yes (Hospitalization)
  Sender: FDA-Public Use
  Company Number: US-H14001-14-00817

PATIENT
  Age: 62 Year

DRUGS (5)
  1. HYDROCORTISONE (HYDROCORTISONE) UNKNOWN (HYDROCORTISONE) [Suspect]
     Active Substance: HYDROCORTISONE
     Indication: SECONDARY ADRENOCORTICAL INSUFFICIENCY
  2. SALINE (SODIUM CHLORIDE) (UNKNOWN) (SODIUM CHLORIDE) [Concomitant]
  3. PREDNISONE ACETATE (PREDNISONE ACETATE) (EYEDROPS) (PREDNISONE ACETATE) [Concomitant]
  4. IPILIMUMAB (IPILIMUMAB) (UNKNOWN) (IPILIMUMAB) [Concomitant]
  5. DEMECLOCYCLINE (DEMECLOCYCLINE) (UNKNOWN) (DEMECLOCYCLINE) [Concomitant]

REACTIONS (5)
  - Hallucination [None]
  - Iridocyclitis [None]
  - Thirst [None]
  - Pollakiuria [None]
  - Confusional state [None]
